FAERS Safety Report 8773546 (Version 1)
Quarter: 2012Q4

REPORT INFORMATION
  Report Type: 
  Country: US (occurrence: US)
  Receive Date: 20120907
  Receipt Date: 20120907
  Transmission Date: 20130627
  Serious: Yes (Other)
  Sender: FDA-Public Use
  Company Number: US-PFIZER INC-2012219297

PATIENT
  Age: 37 Year
  Sex: Female
  Weight: 61 kg

DRUGS (9)
  1. LYRICA [Suspect]
     Indication: FIBROMYALGIA
     Dosage: UNK
     Route: 048
  2. EFFEXOR [Suspect]
     Indication: DEPRESSION
     Dosage: 150 mg, 1x/day
     Route: 048
  3. WELLBUTRIN [Concomitant]
     Dosage: 100 mg, 3x/day
  4. XANAX [Concomitant]
     Dosage: 2 mg, 3x/day
  5. FLEXERIL [Concomitant]
     Dosage: 10 mg, 3x/day
  6. INDERAL [Concomitant]
     Dosage: 20 mg, 2x/day
  7. REMERON [Concomitant]
     Dosage: 30 mg (two 15mg), 1x/day
  8. LORTAB [Concomitant]
     Dosage: UNK
  9. VITAMIN B12 [Concomitant]
     Dosage: 2500 ug, UNK
     Route: 060

REACTIONS (11)
  - Renal disorder [Not Recovered/Not Resolved]
  - Impaired work ability [Not Recovered/Not Resolved]
  - Impaired driving ability [Not Recovered/Not Resolved]
  - Mental disorder [Not Recovered/Not Resolved]
  - Nerve injury [Not Recovered/Not Resolved]
  - Musculoskeletal disorder [Not Recovered/Not Resolved]
  - Abdominal pain upper [Not Recovered/Not Resolved]
  - Oedema peripheral [Not Recovered/Not Resolved]
  - Gait disturbance [Not Recovered/Not Resolved]
  - Hypokinesia [Not Recovered/Not Resolved]
  - Drug ineffective [Unknown]
